FAERS Safety Report 12901685 (Version 1)
Quarter: 2016Q4

REPORT INFORMATION
  Report Type: Report from Study
  Country: US (occurrence: US)
  Receive Date: 20161102
  Receipt Date: 20161102
  Transmission Date: 20170207
  Serious: Yes (Hospitalization, Other)
  Sender: FDA-Public Use
  Company Number: US-ROCHE-1847330

PATIENT

DRUGS (6)
  1. BEVACIZUMAB [Suspect]
     Active Substance: BEVACIZUMAB
     Indication: COLORECTAL CANCER METASTATIC
     Dosage: ON DAY 1 OF EACH CYCLE, MORE THAN 90 MINUTES FOR THE FIRST DOSE, 60 MINUTES FOR THE SECOND DOSE AND
     Route: 042
  2. LEUCOVORIN. [Suspect]
     Active Substance: LEUCOVORIN
     Indication: COLORECTAL CANCER METASTATIC
     Route: 042
  3. 5-FU [Suspect]
     Active Substance: FLUOROURACIL
     Indication: COLORECTAL CANCER METASTATIC
     Route: 040
  4. 5-FU [Suspect]
     Active Substance: FLUOROURACIL
     Dosage: 46 HOURS INFUSION OF 2.4 G/M2.
     Route: 042
  5. OXALIPLATIN. [Suspect]
     Active Substance: OXALIPLATIN
     Indication: COLORECTAL CANCER METASTATIC
     Route: 042
  6. ERLOTINIB [Suspect]
     Active Substance: ERLOTINIB
     Indication: COLORECTAL CANCER METASTATIC
     Route: 048

REACTIONS (18)
  - Fatigue [Unknown]
  - Stomatitis [Unknown]
  - Haemorrhage [Unknown]
  - Vomiting [Unknown]
  - Abdominal pain [Unknown]
  - Dehydration [Unknown]
  - Small intestinal obstruction [Unknown]
  - Neuropathy peripheral [Unknown]
  - Anaemia [Unknown]
  - Intestinal perforation [Unknown]
  - Rash [Unknown]
  - Thrombocytopenia [Unknown]
  - Hypersensitivity [Unknown]
  - Diarrhoea [Unknown]
  - Neutropenia [Unknown]
  - Decreased appetite [Unknown]
  - Nausea [Unknown]
  - Febrile neutropenia [Unknown]
